FAERS Safety Report 9153443 (Version 1)
Quarter: 2013Q1

REPORT INFORMATION
  Report Type: Spontaneous
  Country: SE (occurrence: None)
  Receive Date: 20130204
  Receipt Date: 20130204
  Transmission Date: 20140127
  Serious: Yes (Hospitalization)
  Sender: FDA-Public Use
  Company Number: 2013BI006983

PATIENT
  Age: 57 Year
  Sex: Female

DRUGS (1)
  1. FAMPRIDINE [Suspect]
     Indication: MULTIPLE SCLEROSIS
     Route: 048
     Dates: start: 20121003

REACTIONS (5)
  - Multiple sclerosis relapse [None]
  - Optic neuritis [None]
  - Vision blurred [None]
  - Cytotoxic oedema [None]
  - Visual field defect [None]
